FAERS Safety Report 10166042 (Version 1)
Quarter: 2014Q2

REPORT INFORMATION
  Report Type: Spontaneous
  Country: AT (occurrence: AT)
  Receive Date: 20140511
  Receipt Date: 20140511
  Transmission Date: 20141212
  Serious: Yes (Hospitalization)
  Sender: FDA-Public Use
  Company Number: AT-ROCHE-1397284

PATIENT
  Age: 72 Year
  Sex: Male
  Weight: 78 kg

DRUGS (2)
  1. ROACTEMRA [Suspect]
     Indication: RHEUMATOID ARTHRITIS
     Route: 065
     Dates: start: 201307
  2. PREDNISOLONE [Suspect]
     Indication: RHEUMATOID ARTHRITIS
     Dosage: 1 DAYS
     Route: 048

REACTIONS (1)
  - Angioplasty [Recovered/Resolved]
